FAERS Safety Report 18223270 (Version 1)
Quarter: 2020Q3

REPORT INFORMATION
  Report Type: Spontaneous
  Country: US (occurrence: US)
  Receive Date: 20200902
  Receipt Date: 20200902
  Transmission Date: 20201103
  Serious: Yes (Disabling)
  Sender: FDA-Public Use
  Company Number: US-ELI_LILLY_AND_COMPANY-US202008010268

PATIENT
  Sex: Female

DRUGS (1)
  1. EMGALITY [Suspect]
     Active Substance: GALCANEZUMAB-GNLM
     Indication: MIGRAINE
     Dosage: UNK, UNKNOWN
     Route: 065

REACTIONS (7)
  - Headache [Unknown]
  - Irritable bowel syndrome [Unknown]
  - Migraine with aura [Unknown]
  - Nausea [Unknown]
  - Product storage error [Unknown]
  - Fatigue [Unknown]
  - Stress [Unknown]
